FAERS Safety Report 24231982 (Version 1)
Quarter: 2024Q3

REPORT INFORMATION
  Report Type: Spontaneous
  Country: SE (occurrence: None)
  Receive Date: 20240821
  Receipt Date: 20240821
  Transmission Date: 20241016
  Serious: Yes (Hospitalization)
  Sender: ASTRAZENECA
  Company Number: 2024A184205

PATIENT
  Age: 38 Year
  Sex: Male
  Weight: 85 kg

DRUGS (3)
  1. DAPAGLIFLOZIN [Suspect]
     Active Substance: DAPAGLIFLOZIN
     Indication: Chronic kidney disease
     Dosage: 1 TABLET 1 TIME DAILY
     Route: 048
     Dates: start: 20240223, end: 20240618
  2. ENALAPRIL [Concomitant]
     Active Substance: ENALAPRIL
     Dosage: 3 TABLETS 1 TIME DAILY
     Route: 048
     Dates: start: 20230818
  3. SODIUM BICARBONATE MEDA [Concomitant]
     Dosage: 1 TABLET 2 TIMES DAILY
     Route: 048
     Dates: start: 20240223

REACTIONS (2)
  - Muscle spasms [Recovered/Resolved]
  - Pain in extremity [Recovered/Resolved]

NARRATIVE: CASE EVENT DATE: 20240608
